FAERS Safety Report 18457813 (Version 4)
Quarter: 2021Q4

REPORT INFORMATION
  Report Type: Spontaneous
  Country: PT (occurrence: PT)
  Receive Date: 20201103
  Receipt Date: 20211122
  Transmission Date: 20220303
  Serious: Yes (Death, Other)
  Sender: FDA-Public Use
  Company Number: PT-MYLANLABS-2020M1091547

PATIENT
  Age: 34 Year
  Sex: Male

DRUGS (13)
  1. BLEOMYCIN [Suspect]
     Active Substance: BLEOMYCIN SULFATE
     Indication: Extragonadal primary germ cell tumour
     Dosage: UNK, CYCLIC (4 CYCLES)
  2. BLEOMYCIN [Suspect]
     Active Substance: BLEOMYCIN SULFATE
     Indication: Neoplasm progression
  3. BLEOMYCIN [Suspect]
     Active Substance: BLEOMYCIN SULFATE
     Indication: Condition aggravated
  4. BLEOMYCIN [Suspect]
     Active Substance: BLEOMYCIN SULFATE
     Indication: Germ cell cancer metastatic
  5. ETOPOSIDE [Suspect]
     Active Substance: ETOPOSIDE
     Indication: Extragonadal primary germ cell tumour
     Dosage: UNK, CYCLIC (4 CYCLES)
  6. ETOPOSIDE [Suspect]
     Active Substance: ETOPOSIDE
     Indication: Condition aggravated
  7. ETOPOSIDE [Suspect]
     Active Substance: ETOPOSIDE
     Indication: Neoplasm progression
  8. ETOPOSIDE [Suspect]
     Active Substance: ETOPOSIDE
     Indication: Germ cell cancer metastatic
  9. CISPLATIN [Suspect]
     Active Substance: CISPLATIN
     Indication: Extragonadal primary germ cell tumour
     Dosage: UNK, CYCLIC (4 CYCLES)
  10. CISPLATIN [Suspect]
     Active Substance: CISPLATIN
     Indication: Condition aggravated
  11. CISPLATIN [Suspect]
     Active Substance: CISPLATIN
     Indication: Neoplasm progression
  12. CISPLATIN [Suspect]
     Active Substance: CISPLATIN
     Indication: Germ cell cancer metastatic
  13. DEXAMETHASONE [Suspect]
     Active Substance: DEXAMETHASONE
     Indication: Germ cell cancer metastatic
     Dosage: 10 MILLIGRAM, QD, (10 MG BOLUS OF IV DEXAMETHASONE, FOLLOWED BY 5 MG, 2 TIMES A DAY, PER OS)
     Route: 042

REACTIONS (6)
  - Disease progression [Fatal]
  - Death [Fatal]
  - Metastases to central nervous system [Unknown]
  - Neutropenia [Unknown]
  - Candida infection [Unknown]
  - Off label use [Unknown]
